FAERS Safety Report 5553665-5 (Version None)
Quarter: 2007Q4

REPORT INFORMATION
  Report Type: 
  Country: None (occurrence: None)
  Receive Date: 20071213
  Receipt Date: 20071204
  Transmission Date: 20080405
  Serious: Yes (Other)
  Sender: FDA-Public Use
  Company Number: PHBS2007TW20459

PATIENT
  Age: 39 Year
  Sex: Female

DRUGS (4)
  1. CLOZAPINE [Suspect]
     Indication: SCHIZOAFFECTIVE DISORDER
     Dosage: UP TO 400 MG/DAY
  2. CLOZAPINE [Suspect]
     Dosage: 25 MG/DAY
  3. VALPROIC ACID [Concomitant]
     Dosage: 1000 MG/DAY
  4. VALPROIC ACID [Concomitant]
     Dosage: 800 MG/DAY

REACTIONS (4)
  - CEREBRAL ATROPHY [None]
  - CEREBRAL VENTRICLE DILATATION [None]
  - DYSTONIA [None]
  - PLEUROTHOTONUS [None]
